FAERS Safety Report 6520224-7 (Version None)
Quarter: 2009Q4

REPORT INFORMATION
  Report Type: 
  Country: None (occurrence: None)
  Receive Date: 20091229
  Receipt Date: 20091217
  Transmission Date: 20100525
  Serious: Yes (Other)
  Sender: FDA-Public Use
  Company Number: PHHY2009DE55938

PATIENT
  Age: 72 Year
  Sex: Male

DRUGS (4)
  1. ZOLEDRONATE [Suspect]
     Indication: PLASMACYTOMA
     Dosage: 4 MG, QMO
     Dates: start: 20010601, end: 20040601
  2. PAMIDRONATE DISODIUM [Suspect]
     Indication: PLASMACYTOMA
     Dosage: 90 MG, QMO
     Dates: start: 19981101, end: 20010501
  3. MELPHALAN [Concomitant]
     Dosage: UNK
     Dates: start: 19981101, end: 19990701
  4. PREDNISOLONE [Concomitant]
     Dosage: UNK
     Dates: start: 19981101, end: 19990701

REACTIONS (10)
  - ABSCESS DRAINAGE [None]
  - ABSCESS JAW [None]
  - DEBRIDEMENT [None]
  - HYPOAESTHESIA ORAL [None]
  - JAW OPERATION [None]
  - ORAL CAVITY FISTULA [None]
  - OSTEONECROSIS [None]
  - PAIN [None]
  - SWELLING [None]
  - TOOTH EXTRACTION [None]
